FAERS Safety Report 18296157 (Version 1)
Quarter: 2020Q3

REPORT INFORMATION
  Report Type: Spontaneous
  Country: US (occurrence: US)
  Receive Date: 20200922
  Receipt Date: 20200922
  Transmission Date: 20201103
  Serious: Yes (Other)
  Sender: FDA-Public Use
  Company Number: US-FRESENIUS KABI-FK202009695

PATIENT
  Age: 30 Year
  Sex: Female

DRUGS (7)
  1. CHLOROPROCAINE (MANUFACTURER UNKNOWN) [Suspect]
     Active Substance: CHLOROPROCAINE
     Dosage: ADDITIONAL BOLUSES WERE GIVEN FOR A TOTAL OF 15ML
     Route: 008
  2. OXYTOCIN INJECTION (MANUFACTURER UNKNOWN) [Suspect]
     Active Substance: OXYTOCIN
     Indication: DRUG THERAPY
     Route: 042
  3. CHLOROPROCAINE (MANUFACTURER UNKNOWN) [Suspect]
     Active Substance: CHLOROPROCAINE
     Indication: EPIDURAL ANALGESIA
     Route: 008
  4. EPOPROSTENOL. [Concomitant]
     Active Substance: EPOPROSTENOL
     Indication: RIGHT-TO-LEFT CARDIAC SHUNT
     Route: 050
  5. BUPIVACAINE (MANUFACTURER UNKNOWN) [Suspect]
     Active Substance: BUPIVACAINE
     Indication: EPIDURAL ANALGESIA
     Dosage: SMALL BOLUSES OF 2 TO 4ML AND GRADUAL TITRATION UP TO 8ML/H
     Route: 008
  6. FENTANYL (MANUFACTURER UNKNOWN) [Suspect]
     Active Substance: FENTANYL
     Indication: EPIDURAL ANALGESIA
     Route: 008
  7. ROPIVACAINE (MANUFACTURER UNKNOWN) [Suspect]
     Active Substance: ROPIVACAINE
     Indication: EPIDURAL ANALGESIA
     Route: 008

REACTIONS (2)
  - Exposure during pregnancy [Recovered/Resolved]
  - Haemodynamic instability [Recovered/Resolved]
